FAERS Safety Report 4600978-7 (Version None)
Quarter: 2005Q1

REPORT INFORMATION
  Report Type: 
  Country: None (occurrence: None)
  Receive Date: 20050204
  Receipt Date: 20041027
  Transmission Date: 20050727
  Serious: Yes (Life-Threatening, Other)
  Sender: FDA-Public Use
  Company Number: USA041080713

PATIENT
  Age: 45 Year
  Sex: Female

DRUGS (2)
  1. EVISTA [Suspect]
  2. ORAL CONTRACEPTIVE [Concomitant]

REACTIONS (1)
  - PULMONARY EMBOLISM [None]
